FAERS Safety Report 7124909-3 (Version None)
Quarter: 2010Q4

REPORT INFORMATION
  Report Type: 
  Country: None (occurrence: None)
  Receive Date: 20101129
  Receipt Date: 20101124
  Transmission Date: 20110411
  Serious: Yes (Death)
  Sender: FDA-Public Use
  Company Number: PHHY2010ZA79935

PATIENT
  Sex: Male

DRUGS (4)
  1. ZOMETA [Suspect]
     Dosage: 4MG POWDER FOR SOLUTION
  2. PHARMAPRESS [Concomitant]
  3. CLINDAMYCIN HCL [Concomitant]
     Dosage: UNK
  4. NEXAVAR [Concomitant]
     Dosage: UNK

REACTIONS (1)
  - DEATH [None]
